FAERS Safety Report 6545964-5 (Version None)
Quarter: 2010Q1

REPORT INFORMATION
  Report Type: 
  Country: None (occurrence: None)
  Receive Date: 20100121
  Receipt Date: 20100121
  Transmission Date: 20100710
  Serious: Yes (Death)
  Sender: FDA-Public Use
  Company Number: None

PATIENT
  Sex: Female
  Weight: 42 kg

DRUGS (1)
  1. ACETAMINOPHEN 650MG TYLENOL ARTHRITIS [Suspect]
     Indication: RHEUMATOID ARTHRITIS
     Dosage: 1300MG TID PO
     Route: 048
     Dates: start: 20080201, end: 20081211

REACTIONS (10)
  - ACUTE HEPATIC FAILURE [None]
  - DRUG TOXICITY [None]
  - HAEMODIALYSIS [None]
  - HEPATIC ENCEPHALOPATHY [None]
  - HEPATIC FUNCTION ABNORMAL [None]
  - HYPOGLYCAEMIA [None]
  - HYPOTENSION [None]
  - INTERNATIONAL NORMALISED RATIO INCREASED [None]
  - MENTAL STATUS CHANGES [None]
  - SEPSIS [None]
